FAERS Safety Report 23613825 (Version 1)
Quarter: 2024Q1

REPORT INFORMATION
  Report Type: Spontaneous
  Country: GB (occurrence: GB)
  Receive Date: 20240310
  Receipt Date: 20240310
  Transmission Date: 20240410
  Serious: Yes (Other)
  Sender: FDA-Public Use
  Company Number: GB-MHRA-MED-202402251202076730-TQJHP

PATIENT
  Age: 11 Year
  Sex: Female
  Weight: 48 kg

DRUGS (2)
  1. METRONIDAZOLE [Suspect]
     Active Substance: METRONIDAZOLE
     Indication: Appendicectomy
     Dosage: UNK
     Route: 065
     Dates: start: 20240214, end: 20240214
  2. CIPROFLOXACIN [Concomitant]
     Active Substance: CIPROFLOXACIN
     Indication: Appendicitis
     Dosage: UNK
     Route: 065
     Dates: start: 20240212, end: 20240214

REACTIONS (1)
  - Thermal burn [Recovering/Resolving]

NARRATIVE: CASE EVENT DATE: 20240214
